FAERS Safety Report 20986291 (Version 3)
Quarter: 2022Q3

REPORT INFORMATION
  Report Type: Spontaneous
  Country: AU (occurrence: AU)
  Receive Date: 20220621
  Receipt Date: 20220802
  Transmission Date: 20221026
  Serious: Yes (Hospitalization, Other)
  Sender: FDA-Public Use
  Company Number: AU-ORGANON-O2206AUS001676

PATIENT
  Age: 39 Year
  Sex: Female
  Weight: 71.4 kg

DRUGS (1)
  1. ETONOGESTREL [Suspect]
     Active Substance: ETONOGESTREL
     Indication: Contraception
     Dosage: 1 IMPLANT INTO HER LEFT UPPER ARM, ONCE ONLY
     Route: 059
     Dates: start: 20140630, end: 20210607

REACTIONS (12)
  - Pulmonary embolism [Recovered/Resolved]
  - Device embolisation [Recovered/Resolved]
  - General anaesthesia [Unknown]
  - Loss of consciousness [Unknown]
  - Lymphadenopathy [Unknown]
  - Anaemia [Unknown]
  - Dizziness [Unknown]
  - Nausea [Unknown]
  - Mood altered [Unknown]
  - Complication associated with device [Recovered/Resolved]
  - Heavy menstrual bleeding [Recovered/Resolved]
  - Incorrect product administration duration [Unknown]

NARRATIVE: CASE EVENT DATE: 20150101
